FAERS Safety Report 4646807-7 (Version None)
Quarter: 2005Q2

REPORT INFORMATION
  Report Type: 
  Country: None (occurrence: None)
  Receive Date: 20050331
  Receipt Date: 20041203
  Transmission Date: 20051028
  Serious: No
  Sender: FDA-Public Use
  Company Number: 04P-163-0282133-00

PATIENT
  Age: 62 Year
  Sex: Female
  Weight: 100 kg

DRUGS (14)
  1. HUMIRA [Suspect]
     Indication: RHEUMATOID ARTHRITIS
     Dosage: 40 MG, 1 IN 2 WK, SUBCUTANEOUS
     Route: 058
     Dates: start: 20040915
  2. NIFEDIPINE [Concomitant]
  3. NAZCORT AQ [Concomitant]
  4. ESTRIODIL [Concomitant]
  5. NITROFURANTOIN [Concomitant]
  6. VITAMINS [Concomitant]
  7. METHOTREXATE SODIUM [Concomitant]
  8. VOLTAREN [Concomitant]
  9. LEFLUNOMIDE [Concomitant]
  10. TRAMADOL HCL [Concomitant]
  11. CYCLOBENZAPRINE HCL [Concomitant]
  12. FOLIC ACID [Concomitant]
  13. HYDROCHLOROTHIAZIDE [Concomitant]
  14. OMEPRAZOLE [Concomitant]

REACTIONS (1)
  - DIARRHOEA [None]
